FAERS Safety Report 6108618-5 (Version None)
Quarter: 2009Q1

REPORT INFORMATION
  Report Type: 
  Country: None (occurrence: None)
  Receive Date: 20090305
  Receipt Date: 20090223
  Transmission Date: 20090719
  Serious: Yes (Disabling)
  Sender: FDA-Public Use
  Company Number: OSCN-NO-0902S-0114

PATIENT
  Age: 70 Year
  Sex: Male

DRUGS (8)
  1. OMNISCAN [Suspect]
     Indication: DRUG USE FOR UNKNOWN INDICATION
     Dosage: 10 ML, SINGLE DOSE, I.V.
     Route: 042
     Dates: start: 20030310, end: 20030310
  2. EPOGEN [Concomitant]
  3. FOLIC ACID (FOLINSYRE) [Concomitant]
  4. MAGNESIUM HYDROXIDE (MABLET) [Concomitant]
  5. ACETYLSALICYLIC ACID (MAGNYL DAK) [Concomitant]
  6. HALOPERIDOL (SERENASE) [Concomitant]
  7. PREDNISOLONE [Concomitant]
  8. PANTOPRAZOLE SODIUM [Concomitant]

REACTIONS (2)
  - NEPHROGENIC SYSTEMIC FIBROSIS [None]
  - WALKING AID USER [None]
